FAERS Safety Report 7434012-0 (Version None)
Quarter: 2011Q2

REPORT INFORMATION
  Report Type: 
  Country: None (occurrence: None)
  Receive Date: 20110421
  Receipt Date: 20110421
  Transmission Date: 20111010
  Serious: Yes (Other)
  Sender: FDA-Public Use
  Company Number: None

PATIENT
  Sex: Female
  Weight: 53.5244 kg

DRUGS (3)
  1. SINGULAIR [Suspect]
     Indication: SINUS DISORDER
     Dosage: 10 MGS.  1 A DAY
     Dates: start: 20110226, end: 20110319
  2. SINGULAIR [Suspect]
     Indication: APHONIA
     Dosage: 10 MGS.  1 A DAY
     Dates: start: 20110226, end: 20110319
  3. SINGULAIR [Suspect]

REACTIONS (8)
  - DEPRESSION [None]
  - ANXIETY [None]
  - DECREASED APPETITE [None]
  - GASTRIC DISORDER [None]
  - NAUSEA [None]
  - DIZZINESS [None]
  - NERVOUSNESS [None]
  - WEIGHT DECREASED [None]
